FAERS Safety Report 9222868 (Version 1)
Quarter: 2013Q1

REPORT INFORMATION
  Report Type: Spontaneous
  Country: US (occurrence: None)
  Receive Date: 20120914
  Receipt Date: 20120914
  Transmission Date: 20140127
  Serious: Yes (Hospitalization, Other)
  Sender: FDA-Public Use
  Company Number: JPI-P-019489

PATIENT
  Age: 50 Year
  Sex: Female
  Weight: 67.59 kg

DRUGS (5)
  1. XYREM (500 MILLIGRAM/MILLILITERS, SOLUTION) (SODIUM OXYBATE) [Suspect]
     Indication: CATAPLEXY
     Route: 048
     Dates: start: 20090820
  2. TOPIRAMATE [Concomitant]
  3. LIOTHYRONINE SODIUM [Concomitant]
  4. LEVOTHYROXINE SODIUM [Concomitant]
  5. MODAFINIL [Concomitant]

REACTIONS (4)
  - Pneumonia bacterial [None]
  - Dyspnoea [None]
  - Vomiting [None]
  - Hypotension [None]
